FAERS Safety Report 6252020-2 (Version None)
Quarter: 2009Q2

REPORT INFORMATION
  Report Type: 
  Country: None (occurrence: None)
  Receive Date: 20090630
  Receipt Date: 20071024
  Transmission Date: 20091009
  Serious: Yes (Death, Hospitalization)
  Sender: FDA-Public Use
  Company Number: US-ROCHE-638527

PATIENT
  Sex: Male

DRUGS (28)
  1. ENFUVIRTIDE [Suspect]
     Route: 065
     Dates: start: 20030919, end: 20060424
  2. ENFUVIRTIDE [Suspect]
     Route: 065
     Dates: start: 20060426, end: 20071017
  3. KALETRA [Concomitant]
     Dates: start: 20011010, end: 20060424
  4. KALETRA [Concomitant]
     Dates: start: 20060426, end: 20071017
  5. VIREAD [Concomitant]
     Dosage: FREQUENCY: QD
     Dates: start: 20011205, end: 20060424
  6. VIREAD [Concomitant]
     Dosage: FREQUENCY:QD
     Dates: start: 20060426, end: 20071017
  7. AGENERASE [Concomitant]
     Dosage: FREQUENCY: QD
     Dates: start: 20021101, end: 20040326
  8. EPIVIR [Concomitant]
     Dosage: FREQUENCY: QD
     Dates: start: 20030919, end: 20060424
  9. EPIVIR [Concomitant]
     Dosage: FREQUENCY: QD
     Dates: start: 20060426, end: 20071017
  10. VIDEX EC [Concomitant]
     Dates: start: 20030919, end: 20060424
  11. VIDEX EC [Concomitant]
     Dates: start: 20060426, end: 20071017
  12. LEXIVA [Concomitant]
     Dates: start: 20040326, end: 20060424
  13. LEXIVA [Concomitant]
     Dates: start: 20060426, end: 20071017
  14. ISENTRESS [Concomitant]
     Dates: start: 20071017, end: 20071025
  15. NORVIR [Concomitant]
     Dates: start: 20071017, end: 20071025
  16. PREZISTA [Concomitant]
     Dates: start: 20071017, end: 20071025
  17. TRUVADA [Concomitant]
     Dosage: FREQUENCY: QD
     Dates: start: 20071017, end: 20071025
  18. CLINDAMYCIN [Concomitant]
     Dates: start: 20030919, end: 20060923
  19. CLINDAMYCIN [Concomitant]
     Dosage: FREQUENCY: QD
     Dates: start: 20061213, end: 20061222
  20. ACYCLOVIR [Concomitant]
     Dates: start: 20041008, end: 20060424
  21. ACYCLOVIR [Concomitant]
     Dates: start: 20060426, end: 20071129
  22. LEVAQUIN [Concomitant]
     Dosage: FREQUENCY: QD
     Dates: start: 20050325, end: 20050330
  23. LEVAQUIN [Concomitant]
     Dosage: FREQUENCY: QD
     Dates: start: 20070227, end: 20070303
  24. ZITHROMAX [Concomitant]
     Dosage: FREQUENCY: QD
     Dates: start: 20050325, end: 20050330
  25. AMOXICILLIN [Concomitant]
     Dates: start: 20060105, end: 20060115
  26. BACTRIM DS [Concomitant]
     Dosage: FREQUENCY QD
     Dates: start: 20060426, end: 20071025
  27. BACTRIM DS [Concomitant]
     Dosage: FREQUENCY: QD
     Dates: end: 20060424
  28. DOXYCYCLINE [Concomitant]
     Dates: start: 20061213, end: 20061222

REACTIONS (4)
  - HEPATITIS ACUTE [None]
  - LYMPHOMA [None]
  - MULTI-ORGAN FAILURE [None]
  - PANCREATITIS NECROTISING [None]
